FAERS Safety Report 4535190-3 (Version None)
Quarter: 2004Q4

REPORT INFORMATION
  Report Type: 
  Country: None (occurrence: None)
  Receive Date: 20041222
  Receipt Date: 20041214
  Transmission Date: 20050328
  Serious: Yes (Hospitalization)
  Sender: FDA-Public Use
  Company Number: BE-JNJFOC-20040904716

PATIENT
  Age: 10 Month
  Sex: Female

DRUGS (2)
  1. PREPULSID [Suspect]
     Route: 049
     Dates: start: 20031001, end: 20040310
  2. ZANTAC [Concomitant]

REACTIONS (1)
  - FUNDOPLICATION [None]
